FAERS Safety Report 5019920-2 (Version None)
Quarter: 2006Q2

REPORT INFORMATION
  Report Type: 
  Country: None (occurrence: None)
  Receive Date: 20060607
  Receipt Date: 20060526
  Transmission Date: 20061013
  Serious: Yes (Hospitalization)
  Sender: FDA-Public Use
  Company Number: US-AMGEN-US180951

PATIENT
  Sex: Male

DRUGS (14)
  1. EPOGEN [Suspect]
     Indication: DIALYSIS
  2. NEURONTIN [Concomitant]
     Route: 065
  3. RENAGEL [Concomitant]
     Route: 065
  4. ATACAND [Concomitant]
     Route: 065
  5. ASPIRIN [Concomitant]
     Route: 065
  6. CLONIDINE [Concomitant]
     Route: 065
  7. NIASPAN [Concomitant]
     Route: 065
  8. PREVACID [Concomitant]
     Route: 065
  9. NORVASC [Concomitant]
     Route: 065
  10. METOPROLOL [Concomitant]
     Route: 065
  11. LISINOPRIL [Concomitant]
     Route: 065
  12. COZAAR [Concomitant]
     Route: 065
  13. DILANTIN [Concomitant]
     Route: 065
  14. HYDROCODONE [Concomitant]
     Route: 065

REACTIONS (2)
  - HAEMOGLOBIN DECREASED [None]
  - WOUND COMPLICATION [None]
